FAERS Safety Report 9723998 (Version 1)
Quarter: 2013Q4

REPORT INFORMATION
  Report Type: Spontaneous
  Country: US (occurrence: US)
  Receive Date: 20131202
  Receipt Date: 20131202
  Transmission Date: 20140711
  Serious: No
  Sender: FDA-Public Use
  Company Number: US-AMGEN-USASP2013078910

PATIENT
  Age: 16 Year
  Sex: Male

DRUGS (2)
  1. ENBREL [Suspect]
     Indication: JUVENILE IDIOPATHIC ARTHRITIS
     Dosage: 50 MG, QWK
     Route: 065
     Dates: start: 20130301
  2. METHOTREXATE [Concomitant]
     Dosage: UNK UNK, QWK, 8 TABLETS
     Dates: start: 201211

REACTIONS (1)
  - Fatigue [Not Recovered/Not Resolved]
